FAERS Safety Report 7236166-8 (Version None)
Quarter: 2011Q1

REPORT INFORMATION
  Report Type: 
  Country: None (occurrence: None)
  Receive Date: 20110120
  Receipt Date: 20110113
  Transmission Date: 20110831
  Serious: Yes (Other)
  Sender: FDA-Public Use
  Company Number: US-B.I. PHARMACEUTICALS,INC./RIDGEFIELD-2011-BP-00960BP

PATIENT

DRUGS (2)
  1. PRADAXA [Suspect]
  2. LOVENOX [Concomitant]

REACTIONS (1)
  - PERICARDIAL HAEMORRHAGE [None]
